FAERS Safety Report 17783224 (Version 4)
Quarter: 2020Q2

REPORT INFORMATION
  Report Type: Spontaneous
  Country: CN (occurrence: CN)
  Receive Date: 20200513
  Receipt Date: 20200602
  Transmission Date: 20200714
  Serious: Yes (Hospitalization, Other)
  Sender: FDA-Public Use
  Company Number: CN-PFIZER INC-2020190932

PATIENT
  Age: 28 Year
  Sex: Male
  Weight: 90 kg

DRUGS (22)
  1. TIGECYCLINE. [Suspect]
     Active Substance: TIGECYCLINE
     Dosage: 100MG FOLLOWED BY MAINTENANCE WITH 50MG EVERY 12H
  2. VANCOMYCIN [Suspect]
     Active Substance: VANCOMYCIN
     Dosage: 2.5 G 24H CONTINUOUS PUMPING ON DAY 11
  3. METRONIDAZOLE. [Concomitant]
     Active Substance: METRONIDAZOLE
  4. CASPOFUNGIN [Suspect]
     Active Substance: CASPOFUNGIN
     Indication: CANDIDA INFECTION
     Dosage: 70MG, FOLLOWED BY MAINTENANCE DOSE OF 50 MG/DAY
  5. FLUCONAZOLE. [Suspect]
     Active Substance: FLUCONAZOLE
     Dosage: 400MG MAINTENANCE QD WAS INITIATED ON DAY 18
  6. SODIUM HYDROGEN CARBONATE [Concomitant]
     Active Substance: SODIUM BICARBONATE
     Indication: STENOTROPHOMONAS INFECTION
     Dosage: UNK
  7. THYMALFASIN [Concomitant]
     Active Substance: THYMALFASIN
  8. LINEZOLID. [Suspect]
     Active Substance: LINEZOLID
     Indication: STAPHYLOCOCCAL INFECTION
     Dosage: 600 MG, 2X/DAY ON DAY 17
  9. TIGECYCLINE. [Suspect]
     Active Substance: TIGECYCLINE
     Dosage: 100MG FOLLOWED BY MAINTENANCE WITH 50MG EVERY 12H
  10. CASPOFUNGIN [Suspect]
     Active Substance: CASPOFUNGIN
     Dosage: 70 MG, FOLLOWED BY MAINTENANCE DOSE OF 50 MG/DAY
  11. IMIPENEM AND CILASTATIN SODIUM [Concomitant]
     Active Substance: CILASTATIN SODIUM\IMIPENEM
     Indication: EVIDENCE BASED TREATMENT
     Dosage: 1 G, 3X/DAY
  12. MEROPENEM. [Concomitant]
     Active Substance: MEROPENEM
     Dosage: 2 G, 3X/DAY
  13. FLUCONAZOLE. [Suspect]
     Active Substance: FLUCONAZOLE
     Indication: CANDIDA INFECTION
     Dosage: 800MG FOLLOWED BY 400MG MAINTENANCE QD WAS INITIATED ON DAY 18
  14. VANCOMYCIN [Suspect]
     Active Substance: VANCOMYCIN
     Dosage: 2.5 G WITH 24H CONTINUOUS PUMPING
  15. VANCOMYCIN [Suspect]
     Active Substance: VANCOMYCIN
     Dosage: 1 G, 2X/DAY (INJECTED INTO THE GASTRIC TUBE)
  16. SULFAMETHOXAZOLE [Suspect]
     Active Substance: SULFAMETHOXAZOLE
     Indication: STENOTROPHOMONAS INFECTION
     Dosage: 960MG TID (INJECTED IN GASTRIC TUBE)
  17. VANCOMYCIN [Suspect]
     Active Substance: VANCOMYCIN
     Indication: EVIDENCE BASED TREATMENT
     Dosage: 0.5 G, 4X/DAY ON DAY 1
  18. VANCOMYCIN [Suspect]
     Active Substance: VANCOMYCIN
     Dosage: 2 G AS 24H CONTINUOUS PUMPING ON DAY 7
  19. AMIKACIN. [Concomitant]
     Active Substance: AMIKACIN
     Indication: KLEBSIELLA INFECTION
     Dosage: 1200 MG, 1X/DAY
  20. TEICOPLANIN [Concomitant]
     Active Substance: TEICOPLANIN
  21. OMEPRAZOLE. [Concomitant]
     Active Substance: OMEPRAZOLE
     Indication: GASTROINTESTINAL DISORDER THERAPY
     Dosage: 40 MG, 2X/DAY
     Route: 042
  22. HUMAN FIBRINOGEN [Concomitant]
     Active Substance: FIBRINOGEN HUMAN
     Dosage: UNK

REACTIONS (3)
  - Toxicity to various agents [Unknown]
  - Lactic acidosis [Recovered/Resolved]
  - Hepatic failure [Unknown]
